FAERS Safety Report 11813071 (Version 1)
Quarter: 2015Q4

REPORT INFORMATION
  Report Type: Spontaneous
  Country: IN (occurrence: IN)
  Receive Date: 20151209
  Receipt Date: 20151209
  Transmission Date: 20160305
  Serious: Yes (Hospitalization)
  Sender: FDA-Public Use
  Company Number: IN-AMGEN-INDSP2015129857

PATIENT
  Age: 67 Year
  Sex: Female
  Weight: 64.99 kg

DRUGS (7)
  1. DOLO                               /00020001/ [Concomitant]
     Dosage: UNK, 1X/DAY
     Route: 048
  2. ENBREL [Suspect]
     Active Substance: ETANERCEPT
     Indication: RHEUMATOID ARTHRITIS
     Dosage: 50 MG, WEEKLY
     Route: 058
     Dates: start: 20150604, end: 20150915
  3. PANTACID                           /00416501/ [Concomitant]
     Dosage: UNK, 1X/DAY
     Route: 048
  4. BETAMINE                           /00056102/ [Concomitant]
     Dosage: UNK, 2X/DAY
     Route: 048
  5. LEFRA [Concomitant]
     Dosage: UNK, 1X/DAY
     Route: 048
  6. OMNACORTIL                         /00016201/ [Concomitant]
     Dosage: UNK, 1X/DAY
     Route: 048
  7. ZIFI [Concomitant]
     Dosage: UNK, 2X/DAY
     Route: 048

REACTIONS (5)
  - Dyspnoea [Recovering/Resolving]
  - Spinal osteoarthritis [Unknown]
  - Hiatus hernia [Unknown]
  - Osteoarthritis [Unknown]
  - Interstitial lung disease [Recovering/Resolving]

NARRATIVE: CASE EVENT DATE: 20150930
